FAERS Safety Report 8506882-6 (Version None)
Quarter: 2012Q3

REPORT INFORMATION
  Report Type: 
  Country: None (occurrence: None)
  Receive Date: 20120712
  Receipt Date: 20120706
  Transmission Date: 20120928
  Serious: No
  Sender: FDA-Public Use
  Company Number: US-PFIZER INC-2012094321

PATIENT
  Sex: Female
  Weight: 59 kg

DRUGS (1)
  1. AMLODIPINE BESYLATE [Suspect]
     Indication: HYPERTENSION
     Dosage: 2.5 MG, 1X/DAY
     Route: 048
     Dates: end: 20120312

REACTIONS (7)
  - TREMOR [None]
  - DIZZINESS [None]
  - DRUG INEFFECTIVE [None]
  - CHEST PAIN [None]
  - HEADACHE [None]
  - NAUSEA [None]
  - SYNCOPE [None]
